FAERS Safety Report 9355620 (Version 2)
Quarter: 2013Q3

REPORT INFORMATION
  Report Type: Report from Study
  Country: TZ (occurrence: TZ)
  Receive Date: 20130619
  Receipt Date: 20130724
  Transmission Date: 20140515
  Serious: Yes (Disabling)
  Sender: FDA-Public Use
  Company Number: TZ-SANOFI-AVENTIS-2013SA059641

PATIENT
  Age: 28 Year
  Sex: Male
  Weight: 59 kg

DRUGS (11)
  1. PYRAZINAMIDE [Suspect]
     Indication: PULMONARY TUBERCULOSIS
     Dosage: INTENSIVE PHASE
     Route: 065
     Dates: start: 20091104
  2. SEPTRIN [Concomitant]
     Dates: start: 20091215
  3. RIFAMPICIN [Suspect]
     Indication: PULMONARY TUBERCULOSIS
     Dosage: INTENSIVE PHASE
     Route: 065
     Dates: start: 20091104
  4. RIFAMPICIN [Suspect]
     Indication: PULMONARY TUBERCULOSIS
     Dosage: CONTINUATION PHASE 1
     Route: 065
  5. RIFAMPICIN [Suspect]
     Indication: PULMONARY TUBERCULOSIS
     Dosage: CONTINUATION PHASE 2
     Route: 065
     Dates: start: 20100323
  6. BLINDED THERAPY [Suspect]
     Indication: PULMONARY TUBERCULOSIS
     Dosage: INTENSIVE PHASE
     Route: 065
     Dates: start: 20091104
  7. BLINDED THERAPY [Suspect]
     Indication: PULMONARY TUBERCULOSIS
     Dosage: CONTINUATION PHASE 1
     Route: 065
  8. BLINDED THERAPY [Suspect]
     Indication: PULMONARY TUBERCULOSIS
     Dosage: CONTINUATION PHASE 2
     Route: 065
     Dates: start: 20100323
  9. BLINDED THERAPY [Suspect]
     Indication: PULMONARY TUBERCULOSIS
     Dosage: INTENSIVE PHASE
     Route: 065
     Dates: start: 20091104
  10. BLINDED THERAPY [Suspect]
     Indication: PULMONARY TUBERCULOSIS
     Dosage: INTENSIVE PHASE
     Route: 065
     Dates: start: 20091104
  11. BLINDED THERAPY [Suspect]
     Indication: PULMONARY TUBERCULOSIS
     Dosage: CONTINUATION PHASE 1
     Route: 065

REACTIONS (2)
  - Tympanic membrane disorder [Recovered/Resolved with Sequelae]
  - Deafness unilateral [Not Recovered/Not Resolved]
